FAERS Safety Report 12237066 (Version 2)
Quarter: 2017Q3

REPORT INFORMATION
  Report Type: Spontaneous
  Country: US (occurrence: US)
  Receive Date: 20160405
  Receipt Date: 20170925
  Transmission Date: 20171127
  Serious: Yes (Other)
  Sender: FDA-Public Use
  Company Number: US-SUN PHARMACEUTICAL INDUSTRIES LTD-2016US-113966

PATIENT
  Age: 9 Year
  Sex: Female

DRUGS (1)
  1. ISOTRETINOIN [Suspect]
     Active Substance: ISOTRETINOIN
     Indication: MEDULLOBLASTOMA
     Dosage: 14-DAY CYCLES (180 MG/M^2 PER DAY)
     Route: 065

REACTIONS (3)
  - Growth failure [Recovering/Resolving]
  - Epiphyses premature fusion [Recovering/Resolving]
  - Growth hormone deficiency [Recovering/Resolving]
